FAERS Safety Report 26174313 (Version 1)
Quarter: 2025Q4

REPORT INFORMATION
  Report Type: Report from Study
  Country: US (occurrence: US)
  Receive Date: 20251218
  Receipt Date: 20251218
  Transmission Date: 20260118
  Serious: Yes (Other)
  Sender: ALEXION PHARMACEUTICALS
  Company Number: 202511NAM022941US

PATIENT
  Sex: Female

DRUGS (5)
  1. FASENRA [Suspect]
     Active Substance: BENRALIZUMAB
     Dosage: 30 MILLIGRAM, Q4W
     Dates: start: 202504
  2. FASENRA [Suspect]
     Active Substance: BENRALIZUMAB
  3. EPINEPHRINE [Concomitant]
     Active Substance: EPINEPHRINE
  4. ICATIBANT ACETATE [Concomitant]
     Active Substance: ICATIBANT ACETATE
  5. ANDEMBRY [Concomitant]
     Active Substance: GARADACIMAB-GXII

REACTIONS (3)
  - Myocardial infarction [Unknown]
  - Swelling [Unknown]
  - Abdominal distension [Unknown]
